FAERS Safety Report 17797413 (Version 1)
Quarter: 2020Q2

REPORT INFORMATION
  Report Type: Spontaneous
  Country: US (occurrence: US)
  Receive Date: 20200515
  Receipt Date: 20200515
  Transmission Date: 20200714
  Serious: Yes (Death, Life-Threatening, Other)
  Sender: FDA-Public Use
  Company Number: None

PATIENT
  Age: 58 Year
  Sex: Male
  Weight: 137 kg

DRUGS (22)
  1. CISATRACURIUM. [Concomitant]
     Active Substance: CISATRACURIUM
     Dates: start: 20200506, end: 20200512
  2. ESMOLOL [Concomitant]
     Active Substance: ESMOLOL HYDROCHLORIDE
     Dates: start: 20200510, end: 20200514
  3. MORPHINE [Concomitant]
     Active Substance: MORPHINE
     Dates: start: 20200506, end: 20200509
  4. NOREPINEPHRINE. [Concomitant]
     Active Substance: NOREPINEPHRINE
     Dates: start: 20200506, end: 20200514
  5. ENOXAPARIN [Concomitant]
     Active Substance: ENOXAPARIN
     Dates: start: 20200509, end: 20200514
  6. NICARDIPINE [Concomitant]
     Active Substance: NICARDIPINE
     Dates: start: 20200508, end: 20200509
  7. ALBUMIN 25% [Concomitant]
     Active Substance: ALBUMIN HUMAN
     Dates: start: 20200512, end: 20200514
  8. FUROSEMIDE. [Concomitant]
     Active Substance: FUROSEMIDE
     Dates: start: 20200506, end: 20200511
  9. ACETAMINOPHEN. [Concomitant]
     Active Substance: ACETAMINOPHEN
     Dates: start: 20200504, end: 20200514
  10. FENTANYL. [Concomitant]
     Active Substance: FENTANYL
     Dates: start: 20200506, end: 20200514
  11. INSULIN GLARGINE [Concomitant]
     Active Substance: INSULIN GLARGINE
     Dates: start: 20200504, end: 20200514
  12. MELATONIN [Concomitant]
     Active Substance: MELATONIN
     Dates: start: 20200505, end: 20200514
  13. BUDESONIDE INH [Concomitant]
     Dates: start: 20200510, end: 20200514
  14. PANTOPRAZOLE [Concomitant]
     Active Substance: PANTOPRAZOLE
     Dates: start: 20200506, end: 20200514
  15. PROPOFOL. [Concomitant]
     Active Substance: PROPOFOL
     Dates: start: 20200506, end: 20200514
  16. ACTEMRA [Suspect]
     Active Substance: TOCILIZUMAB
     Indication: CYTOKINE STORM
     Dosage: ?          OTHER FREQUENCY:EVERY 8 HOURS X 2;?
     Route: 041
     Dates: start: 20200505, end: 20200505
  17. ASCORBIC ACID. [Concomitant]
     Active Substance: ASCORBIC ACID
     Dates: start: 20200504, end: 20200514
  18. ASPIRIN. [Concomitant]
     Active Substance: ASPIRIN
     Dates: start: 20200504, end: 20200514
  19. CHOLECALCIFEROL [Concomitant]
     Active Substance: CHOLECALCIFEROL
     Dates: start: 20200505, end: 20200514
  20. DEXAMETHASONE. [Concomitant]
     Active Substance: DEXAMETHASONE
     Dates: start: 20200511, end: 20200514
  21. HEPARIN [Concomitant]
     Active Substance: HEPARIN SODIUM
     Dates: start: 20200507, end: 20200514
  22. REGULAR INSULIN [Concomitant]
     Active Substance: INSULIN NOS
     Dates: start: 20200507, end: 20200513

REACTIONS (4)
  - Staphylococcal infection [None]
  - Stevens-Johnson syndrome [None]
  - Rash [None]
  - Toxic shock syndrome [None]

NARRATIVE: CASE EVENT DATE: 20200513
